FAERS Safety Report 26052049 (Version 1)
Quarter: 2025Q4

REPORT INFORMATION
  Report Type: Spontaneous
  Country: US (occurrence: US)
  Receive Date: 20251117
  Receipt Date: 20251117
  Transmission Date: 20260118
  Serious: Yes (Hospitalization, Other)
  Sender: ZYDUS PHARM
  Company Number: US-CADILA HEALTHCARE LIMITED-US-ZYDUS-130367

PATIENT

DRUGS (11)
  1. BETAMETHASONE [Suspect]
     Active Substance: BETAMETHASONE
     Indication: Foetal growth restriction
     Dosage: 12 MILLIGRAM, QD
     Route: 030
  2. BETAMETHASONE [Suspect]
     Active Substance: BETAMETHASONE
     Indication: Nervous system disorder prophylaxis
  3. OLANZAPINE [Suspect]
     Active Substance: OLANZAPINE
     Indication: Antipsychotic therapy
     Dosage: 10 MILLIGRAM, BEDTIME
     Route: 048
  4. OLANZAPINE [Suspect]
     Active Substance: OLANZAPINE
     Dosage: 7.5 MILLIGRAM, BID, ON HOSPITAL DAY 2
     Route: 048
  5. OLANZAPINE [Suspect]
     Active Substance: OLANZAPINE
     Dosage: 10 MILLIGRAM, BID, HOSPITAL DAY 4
     Route: 048
  6. OLANZAPINE [Suspect]
     Active Substance: OLANZAPINE
     Dosage: 5 MILLIGRAM AND 20 MILLIGRAM AT BED TIME, ON HOSPITAL DAY 26
     Route: 048
  7. OLANZAPINE [Suspect]
     Active Substance: OLANZAPINE
     Dosage: 15 MILLIGRAM, BED TIME, ON HOSPITAL DAY 46
     Route: 048
  8. MAGNESIUM SULFATE [Suspect]
     Active Substance: MAGNESIUM SULFATE
     Indication: Product used for unknown indication
     Dosage: 2 GRAM PER HR, FOR 24 HOURS, ON HOSPITAL DAY 22
     Route: 042
  9. MAGNESIUM SULFATE [Suspect]
     Active Substance: MAGNESIUM SULFATE
     Dosage: 6 GRAM, BOLUS
  10. NIFEDIPINE [Suspect]
     Active Substance: NIFEDIPINE
     Indication: Premature labour
     Dosage: 30 MILLIGRAM, QD
     Route: 048
  11. ARIPIPRAZOLE LAUROXIL [Suspect]
     Active Substance: ARIPIPRAZOLE LAUROXIL
     Indication: Product used for unknown indication
     Dosage: UNK
     Route: 065

REACTIONS (2)
  - Psychotic disorder [Not Recovered/Not Resolved]
  - Maternal exposure during pregnancy [Unknown]
